FAERS Safety Report 10253231 (Version 1)
Quarter: 2014Q2

REPORT INFORMATION
  Report Type: Spontaneous
  Country: US (occurrence: US)
  Receive Date: 20140623
  Receipt Date: 20140623
  Transmission Date: 20141212
  Serious: No
  Sender: FDA-Public Use
  Company Number: US-ZOGENIX, INC.-2011ZX000459

PATIENT
  Sex: Female
  Weight: 99.88 kg

DRUGS (10)
  1. SUMAVEL DOSEPRO [Suspect]
     Indication: MIGRAINE
  2. ASA [Concomitant]
     Indication: PRODUCT USED FOR UNKNOWN INDICATION
     Route: 048
  3. AMITRIPTYLINE [Concomitant]
     Indication: MIGRAINE
     Route: 048
  4. EVISTA [Concomitant]
     Indication: OSTEOPENIA
     Route: 048
  5. SUMATRIPTAN [Concomitant]
     Indication: MIGRAINE
     Route: 048
  6. SYNTHROID [Concomitant]
     Indication: THYROID DISORDER
     Route: 048
  7. LOSARTIN [Concomitant]
     Indication: BLOOD PRESSURE
     Route: 048
  8. METFORMIN [Concomitant]
     Indication: DIABETES MELLITUS
     Route: 048
  9. PROPRANOLOL [Concomitant]
     Indication: MIGRAINE
     Route: 048
  10. ULTRAM [Concomitant]
     Indication: PAIN

REACTIONS (1)
  - Injection site pain [Recovered/Resolved]
